FAERS Safety Report 5629210-2 (Version None)
Quarter: 2008Q1

REPORT INFORMATION
  Report Type: 
  Country: None (occurrence: None)
  Receive Date: 20080217
  Receipt Date: 20070719
  Transmission Date: 20080703
  Serious: No
  Sender: FDA-Public Use
  Company Number: US-BAYER-US-2007-026879

PATIENT
  Age: 13 Year
  Sex: Female

DRUGS (1)
  1. FINACEA [Suspect]
     Indication: ACNE
     Route: 061
     Dates: start: 20070401, end: 20070401

REACTIONS (2)
  - RASH [None]
  - RASH ERYTHEMATOUS [None]
